FAERS Safety Report 18455040 (Version 1)
Quarter: 2020Q4

REPORT INFORMATION
  Report Type: Report from Study
  Country: FR (occurrence: FR)
  Receive Date: 20201102
  Receipt Date: 20201102
  Transmission Date: 20210114
  Serious: Yes (Hospitalization)
  Sender: FDA-Public Use
  Company Number: FR-TAKEDA-FR202031447

PATIENT

DRUGS (52)
  1. TEDUGLUTIDE [Suspect]
     Active Substance: TEDUGLUTIDE
     Dosage: 2.4 MILLIGRAM (DAILY DOSE 0.05 MG/KG), OTHER (TED DOSES PER WEEK 7)
     Route: 065
     Dates: start: 20160517, end: 20160616
  2. TEDUGLUTIDE [Suspect]
     Active Substance: TEDUGLUTIDE
     Dosage: 2.4 MILLIGRAM (DAILY DOSE 0.05 MG/KG), OTHER (TED DOSES PER WEEK 7)
     Route: 065
     Dates: start: 20160817, end: 20160906
  3. TEDUGLUTIDE [Suspect]
     Active Substance: TEDUGLUTIDE
     Dosage: 2.3 MILLIGRAM (DAILY DOSE 0.05 MG/KG), OTHER (TED DOSES PER WEEK 7)
     Route: 065
     Dates: start: 20161110, end: 20170321
  4. TEDUGLUTIDE [Suspect]
     Active Substance: TEDUGLUTIDE
     Dosage: 1.95 MILLIGRAM (DAILY DOSE 0.05 MG/KG), OTHER (TED DOSES PER WEEK 7)
     Route: 065
     Dates: start: 20170512, end: 20170619
  5. TEDUGLUTIDE [Suspect]
     Active Substance: TEDUGLUTIDE
     Dosage: 1.95 MILLIGRAM (DAILY DOSE 0.05 MG/KG), OTHER (TED DOSES PER WEEK 7)
     Route: 065
     Dates: start: 20170512, end: 20170619
  6. TEDUGLUTIDE [Suspect]
     Active Substance: TEDUGLUTIDE
     Dosage: 2 MILLIGRAM (DAILY DOSE 0.05 MG/KG), OTHER (TED DOSES PER WEEK 7)
     Route: 065
     Dates: start: 20170627, end: 20170822
  7. TEDUGLUTIDE [Suspect]
     Active Substance: TEDUGLUTIDE
     Dosage: 2 MILLIGRAM (DAILY DOSE 0.05 MG/KG), OTHER (TED DOSES PER WEEK 7)
     Route: 065
     Dates: start: 20170918, end: 20171013
  8. TEDUGLUTIDE [Suspect]
     Active Substance: TEDUGLUTIDE
     Dosage: 2.2 MILLIGRAM (DAILY DOSE 0.05 MG/KG), OTHER (TED DOSES PER WEEK 7)
     Route: 065
     Dates: start: 20181105, end: 20190822
  9. TEDUGLUTIDE [Suspect]
     Active Substance: TEDUGLUTIDE
     Indication: SHORT-BOWEL SYNDROME
     Dosage: 2.6 MILLIGRAM (DAILY DOSE 0.05 MG/KG), OTHER (TED DOSES PER WEEK 7)
     Route: 065
     Dates: start: 20160316, end: 20160516
  10. TEDUGLUTIDE [Suspect]
     Active Substance: TEDUGLUTIDE
     Dosage: 2.6 MILLIGRAM (DAILY DOSE 0.05 MG/KG), OTHER (TED DOSES PER WEEK 7)
     Route: 065
     Dates: start: 20160617, end: 20160816
  11. TEDUGLUTIDE [Suspect]
     Active Substance: TEDUGLUTIDE
     Dosage: 2.2 MILLIGRAM (DAILY DOSE 0.05 MG/KG), OTHER (TED DOSES PER WEEK 7)
     Route: 065
     Dates: start: 20160907, end: 20161109
  12. TEDUGLUTIDE [Suspect]
     Active Substance: TEDUGLUTIDE
     Dosage: 2.3 MILLIGRAM (DAILY DOSE 0.05 MG/KG), OTHER (TED DOSES PER WEEK 7)
     Route: 065
     Dates: start: 20161110, end: 20170321
  13. TEDUGLUTIDE [Suspect]
     Active Substance: TEDUGLUTIDE
     Dosage: 2.27 MILLIGRAM (DAILY DOSE 0.05 MG/KG), OTHER (TED DOSES PER WEEK 7)
     Route: 065
     Dates: start: 20170321, end: 20170512
  14. TEDUGLUTIDE [Suspect]
     Active Substance: TEDUGLUTIDE
     Dosage: 2 MILLIGRAM (DAILY DOSE 0.05 MG/KG), OTHER (TED DOSES PER WEEK 7)
     Route: 065
     Dates: start: 20170627, end: 20170822
  15. TEDUGLUTIDE [Suspect]
     Active Substance: TEDUGLUTIDE
     Dosage: 2.2 MILLIGRAM (DAILY DOSE 0.05 MG/KG), OTHER (TED DOSES PER WEEK 7)
     Route: 065
     Dates: start: 20181105, end: 20190822
  16. TEDUGLUTIDE [Suspect]
     Active Substance: TEDUGLUTIDE
     Dosage: 2.2 MILLIGRAM (DAILY DOSE 0.05 MG/KG), OTHER (TED DOSES PER WEEK 7)
     Route: 065
     Dates: start: 20181105, end: 20190822
  17. MORPHINE [Concomitant]
     Active Substance: MORPHINE
     Indication: PAIN
  18. TEDUGLUTIDE [Suspect]
     Active Substance: TEDUGLUTIDE
     Dosage: 2.6 MILLIGRAM (DAILY DOSE 0.05 MG/KG), OTHER (TED DOSES PER WEEK 7)
     Route: 065
     Dates: start: 20160617, end: 20160816
  19. TEDUGLUTIDE [Suspect]
     Active Substance: TEDUGLUTIDE
     Dosage: 2.4 MILLIGRAM (DAILY DOSE 0.05 MG/KG), OTHER (TED DOSES PER WEEK 7)
     Route: 065
     Dates: start: 20160817, end: 20160906
  20. TEDUGLUTIDE [Suspect]
     Active Substance: TEDUGLUTIDE
     Dosage: 2.27 MILLIGRAM (DAILY DOSE 0.05 MG/KG), OTHER (TED DOSES PER WEEK 7)
     Route: 065
     Dates: start: 20170321, end: 20170512
  21. TEDUGLUTIDE [Suspect]
     Active Substance: TEDUGLUTIDE
     Dosage: 2 MILLIGRAM (DAILY DOSE 0.05 MG/KG), OTHER (TED DOSES PER WEEK 7)
     Route: 065
     Dates: start: 20170627, end: 20170822
  22. TEDUGLUTIDE [Suspect]
     Active Substance: TEDUGLUTIDE
     Dosage: 1 MILLIGRAM (DAILY DOSE 0.02 MG/KG), OTHER (TED DOSES PER WEEK 7)
     Route: 065
     Dates: start: 20171014, end: 201711
  23. TEDUGLUTIDE [Suspect]
     Active Substance: TEDUGLUTIDE
     Indication: SHORT-BOWEL SYNDROME
     Dosage: 2.6 MILLIGRAM (DAILY DOSE 0.05 MG/KG), OTHER (TED DOSES PER WEEK 7)
     Route: 065
     Dates: start: 20160316, end: 20160516
  24. TEDUGLUTIDE [Suspect]
     Active Substance: TEDUGLUTIDE
     Indication: SHORT-BOWEL SYNDROME
     Dosage: 2.6 MILLIGRAM (DAILY DOSE 0.05 MG/KG), OTHER (TED DOSES PER WEEK 7)
     Route: 065
     Dates: start: 20160316, end: 20160516
  25. TEDUGLUTIDE [Suspect]
     Active Substance: TEDUGLUTIDE
     Dosage: 2.6 MILLIGRAM (DAILY DOSE 0.05 MG/KG), OTHER (TED DOSES PER WEEK 7)
     Route: 065
     Dates: start: 20160617, end: 20160816
  26. TEDUGLUTIDE [Suspect]
     Active Substance: TEDUGLUTIDE
     Dosage: 2.3 MILLIGRAM (DAILY DOSE 0.05 MG/KG), OTHER (TED DOSES PER WEEK 7)
     Route: 065
     Dates: start: 20161110, end: 20170321
  27. TEDUGLUTIDE [Suspect]
     Active Substance: TEDUGLUTIDE
     Dosage: 1 MILLIGRAM (DAILY DOSE 0.02 MG/KG), OTHER (TED DOSES PER WEEK 7)
     Route: 065
     Dates: start: 20171014, end: 201711
  28. TAZOCILLINE [Concomitant]
     Active Substance: PIPERACILLIN SODIUM\TAZOBACTAM SODIUM
     Indication: LICE INFESTATION
     Dosage: UNK
     Dates: start: 202002, end: 202003
  29. TEDUGLUTIDE [Suspect]
     Active Substance: TEDUGLUTIDE
     Indication: SHORT-BOWEL SYNDROME
     Dosage: 2.6 MILLIGRAM (DAILY DOSE 0.05 MG/KG), OTHER (TED DOSES PER WEEK 7)
     Route: 065
     Dates: start: 20160316, end: 20160516
  30. TEDUGLUTIDE [Suspect]
     Active Substance: TEDUGLUTIDE
     Dosage: 2.4 MILLIGRAM (DAILY DOSE 0.05 MG/KG), OTHER (TED DOSES PER WEEK 7)
     Route: 065
     Dates: start: 20160517, end: 20160616
  31. TEDUGLUTIDE [Suspect]
     Active Substance: TEDUGLUTIDE
     Dosage: 2.4 MILLIGRAM (DAILY DOSE 0.05 MG/KG), OTHER (TED DOSES PER WEEK 7)
     Route: 065
     Dates: start: 20160517, end: 20160616
  32. TEDUGLUTIDE [Suspect]
     Active Substance: TEDUGLUTIDE
     Dosage: 1.95 MILLIGRAM (DAILY DOSE 0.05 MG/KG), OTHER (TED DOSES PER WEEK 7)
     Route: 065
     Dates: start: 20170512, end: 20170619
  33. TEDUGLUTIDE [Suspect]
     Active Substance: TEDUGLUTIDE
     Dosage: 1.95 MILLIGRAM (DAILY DOSE 0.05 MG/KG), OTHER (TED DOSES PER WEEK 7)
     Route: 065
     Dates: start: 20170512, end: 20170619
  34. TEDUGLUTIDE [Suspect]
     Active Substance: TEDUGLUTIDE
     Dosage: 2 MILLIGRAM (DAILY DOSE 0.05 MG/KG), OTHER (TED DOSES PER WEEK 7)
     Route: 065
     Dates: start: 20170918, end: 20171013
  35. TEDUGLUTIDE [Suspect]
     Active Substance: TEDUGLUTIDE
     Dosage: 1 MILLIGRAM (DAILY DOSE 0.02 MG/KG), OTHER (TED DOSES PER WEEK 7)
     Route: 065
     Dates: start: 20171014, end: 201711
  36. TEDUGLUTIDE [Suspect]
     Active Substance: TEDUGLUTIDE
     Dosage: 2.4 MILLIGRAM (DAILY DOSE 0.05 MG/KG), OTHER (TED DOSES PER WEEK 7)
     Route: 065
     Dates: start: 20160817, end: 20160906
  37. TEDUGLUTIDE [Suspect]
     Active Substance: TEDUGLUTIDE
     Dosage: 2.4 MILLIGRAM (DAILY DOSE 0.05 MG/KG), OTHER (TED DOSES PER WEEK 7)
     Route: 065
     Dates: start: 20160817, end: 20160906
  38. TEDUGLUTIDE [Suspect]
     Active Substance: TEDUGLUTIDE
     Dosage: 2.2 MILLIGRAM (DAILY DOSE 0.05 MG/KG), OTHER (TED DOSES PER WEEK 7)
     Route: 065
     Dates: start: 20160907, end: 20161109
  39. TEDUGLUTIDE [Suspect]
     Active Substance: TEDUGLUTIDE
     Dosage: 2.2 MILLIGRAM (DAILY DOSE 0.05 MG/KG), OTHER (TED DOSES PER WEEK 7)
     Route: 065
     Dates: start: 20160907, end: 20161109
  40. TEDUGLUTIDE [Suspect]
     Active Substance: TEDUGLUTIDE
     Dosage: 2.27 MILLIGRAM (DAILY DOSE 0.05 MG/KG), OTHER (TED DOSES PER WEEK 7)
     Route: 065
     Dates: start: 20170321, end: 20170512
  41. TEDUGLUTIDE [Suspect]
     Active Substance: TEDUGLUTIDE
     Dosage: 2.4 MILLIGRAM (DAILY DOSE 0.05 MG/KG), OTHER (TED DOSES PER WEEK 7)
     Route: 065
     Dates: start: 20160517, end: 20160616
  42. TEDUGLUTIDE [Suspect]
     Active Substance: TEDUGLUTIDE
     Dosage: 2.2 MILLIGRAM (DAILY DOSE 0.05 MG/KG), OTHER (TED DOSES PER WEEK 7)
     Route: 065
     Dates: start: 20160907, end: 20161109
  43. TEDUGLUTIDE [Suspect]
     Active Substance: TEDUGLUTIDE
     Dosage: 2.27 MILLIGRAM (DAILY DOSE 0.05 MG/KG), OTHER (TED DOSES PER WEEK 7)
     Route: 065
     Dates: start: 20170321, end: 20170512
  44. TEDUGLUTIDE [Suspect]
     Active Substance: TEDUGLUTIDE
     Dosage: 1 MILLIGRAM (DAILY DOSE 0.02 MG/KG), OTHER (TED DOSES PER WEEK 7)
     Route: 065
     Dates: start: 20171014, end: 201711
  45. TEDUGLUTIDE [Suspect]
     Active Substance: TEDUGLUTIDE
     Dosage: 2.2 MILLIGRAM (DAILY DOSE 0.05 MG/KG), OTHER (TED DOSES PER WEEK 7)
     Route: 065
     Dates: start: 20181105, end: 20190822
  46. ACUPAN [Concomitant]
     Active Substance: NEFOPAM HYDROCHLORIDE
     Indication: PAIN
  47. DAPTOMYCINE [Concomitant]
     Active Substance: DAPTOMYCIN
     Indication: LICE INFESTATION
     Dosage: UNK
     Dates: start: 202002, end: 202003
  48. TEDUGLUTIDE [Suspect]
     Active Substance: TEDUGLUTIDE
     Dosage: 2.6 MILLIGRAM (DAILY DOSE 0.05 MG/KG), OTHER (TED DOSES PER WEEK 7)
     Route: 065
     Dates: start: 20160617, end: 20160816
  49. TEDUGLUTIDE [Suspect]
     Active Substance: TEDUGLUTIDE
     Dosage: 2.3 MILLIGRAM (DAILY DOSE 0.05 MG/KG), OTHER (TED DOSES PER WEEK 7)
     Route: 065
     Dates: start: 20161110, end: 20170321
  50. TEDUGLUTIDE [Suspect]
     Active Substance: TEDUGLUTIDE
     Dosage: 2 MILLIGRAM (DAILY DOSE 0.05 MG/KG), OTHER (TED DOSES PER WEEK 7)
     Route: 065
     Dates: start: 20170627, end: 20170822
  51. TEDUGLUTIDE [Suspect]
     Active Substance: TEDUGLUTIDE
     Dosage: 2 MILLIGRAM (DAILY DOSE 0.05 MG/KG), OTHER (TED DOSES PER WEEK 7)
     Route: 065
     Dates: start: 20170918, end: 20171013
  52. TEDUGLUTIDE [Suspect]
     Active Substance: TEDUGLUTIDE
     Dosage: 2 MILLIGRAM (DAILY DOSE 0.05 MG/KG), OTHER (TED DOSES PER WEEK 7)
     Route: 065
     Dates: start: 20170918, end: 20171013

REACTIONS (2)
  - Pancreatitis acute [Recovered/Resolved]
  - Anaemia [Recovered/Resolved]

NARRATIVE: CASE EVENT DATE: 20200907
